FAERS Safety Report 4745349-8 (Version None)
Quarter: 2005Q3

REPORT INFORMATION
  Report Type: 
  Country: None (occurrence: None)
  Receive Date: 20050815
  Receipt Date: 20040818
  Transmission Date: 20060218
  Serious: Yes (Hospitalization)
  Sender: FDA-Public Use
  Company Number: PHBS2004JP10911

PATIENT
  Age: 30 Year
  Sex: Female
  Weight: 50 kg

DRUGS (6)
  1. TEGRETOL [Suspect]
     Indication: AFFECTIVE DISORDER
     Dosage: 200 MG/DAY
     Route: 048
     Dates: start: 20040714, end: 20040812
  2. DOGMATYL [Concomitant]
     Indication: DEPRESSION
     Dosage: 100 MG/DAY
     Route: 048
     Dates: start: 20011002, end: 20040826
  3. LEXOTAN [Concomitant]
     Indication: ANXIETY
     Dosage: 8 MG/DAY
     Route: 048
     Dates: start: 20040603
  4. PAXIL [Concomitant]
     Indication: DEPRESSION
     Dosage: 20 MG/DAY
     Route: 048
     Dates: start: 20011213, end: 20040826
  5. SOLANAX [Concomitant]
     Indication: ANXIETY
     Dosage: 0.4 MG/DAY
     Route: 048
     Dates: start: 20011002
  6. GASMOTIN [Concomitant]
     Indication: NAUSEA
     Dosage: 15 MG/DAY
     Route: 048
     Dates: start: 20040106, end: 20040826

REACTIONS (17)
  - ALANINE AMINOTRANSFERASE INCREASED [None]
  - ASPARTATE AMINOTRANSFERASE INCREASED [None]
  - BLOOD ALKALINE PHOSPHATASE INCREASED [None]
  - BLOOD LACTATE DEHYDROGENASE INCREASED [None]
  - DRUG HYPERSENSITIVITY [None]
  - GAMMA-GLUTAMYLTRANSFERASE INCREASED [None]
  - HAEMATOCRIT DECREASED [None]
  - HAEMOGLOBIN DECREASED [None]
  - HEPATIC ENZYME INCREASED [None]
  - INFECTION [None]
  - LYMPHADENOPATHY [None]
  - LYMPHOCYTE MORPHOLOGY ABNORMAL [None]
  - LYMPHOCYTE STIMULATION TEST POSITIVE [None]
  - PYREXIA [None]
  - RASH [None]
  - RED BLOOD CELL COUNT DECREASED [None]
  - WHITE BLOOD CELL COUNT INCREASED [None]
